FAERS Safety Report 8610527-4 (Version None)
Quarter: 2012Q3

REPORT INFORMATION
  Report Type: 
  Country: None (occurrence: None)
  Receive Date: 20120822
  Receipt Date: 20120815
  Transmission Date: 20120928
  Serious: Yes (Life-Threatening, Hospitalization, Other)
  Sender: FDA-Public Use
  Company Number: GB-ACCORD-014019

PATIENT
  Age: 49 Year
  Sex: Female

DRUGS (7)
  1. QUETIAPINE FUMARATE [Concomitant]
     Indication: TOOTH INFECTION
     Dosage: DOSAGE FORM:UNSPECIFIED
     Dates: start: 20070101
  2. MIRTAZAPINE [Suspect]
     Indication: DEPRESSIVE SYMPTOM
     Dosage: 45 MG, QD
     Route: 048
     Dates: start: 20060101, end: 20120121
  3. ZOPICLONE [Concomitant]
     Dosage: ONGOING USE FOR YEARS, STILL TAKING.2.5 MG, UNK
     Route: 048
  4. CLOZARIL [Suspect]
     Indication: SCHIZOPHRENIA
     Dosage: 75 MG, UNK
     Route: 048
     Dates: start: 20120112, end: 20120117
  5. ANTIBIOTICS [Concomitant]
  6. TOPIRAMATE [Suspect]
     Dosage: 300 MG, QD
     Route: 048
     Dates: start: 20070101, end: 20120121
  7. AMOXICILLIN [Concomitant]
     Dosage: UNK
     Route: 048
     Dates: start: 20120116, end: 20120126

REACTIONS (10)
  - NEUTROPENIA [None]
  - WHITE BLOOD CELL COUNT DECREASED [None]
  - EOSINOPHIL COUNT DECREASED [None]
  - SCRATCH [None]
  - OFF LABEL USE [None]
  - TOOTHACHE [None]
  - INJURY [None]
  - ROAD TRAFFIC ACCIDENT [None]
  - PLATELET COUNT DECREASED [None]
  - TOOTH INFECTION [None]
